FAERS Safety Report 7158063-9 (Version None)
Quarter: 2010Q4

REPORT INFORMATION
  Report Type: 
  Country: None (occurrence: None)
  Receive Date: 20101214
  Receipt Date: 20100407
  Transmission Date: 20110411
  Serious: No
  Sender: FDA-Public Use
  Company Number: US-ASTRAZENECA-2010SE15335

PATIENT
  Age: 49 Year
  Sex: Male

DRUGS (3)
  1. CRESTOR [Suspect]
     Route: 048
     Dates: start: 20100201
  2. LANTUS [Concomitant]
     Indication: DIABETES MELLITUS
     Route: 065
  3. UNKNOWN DRUG FOR HYPERTENSION [Concomitant]
     Route: 065

REACTIONS (1)
  - INSOMNIA [None]
